FAERS Safety Report 8854136 (Version 1)
Quarter: 2012Q4

REPORT INFORMATION
  Report Type: 
  Country: US (occurrence: None)
  Receive Date: 20121019
  Receipt Date: 20121019
  Transmission Date: 20130627
  Serious: No
  Sender: FDA-Public Use
  Company Number: None

PATIENT
  Sex: Male
  Weight: 95.2 kg

DRUGS (2)
  1. CARBOPLATIN [Suspect]
     Dates: end: 20120529
  2. PACLITAXEL (TAXOL) [Suspect]
     Dates: end: 20120529

REACTIONS (3)
  - Leukopenia [None]
  - Neutropenia [None]
  - Lymphopenia [None]
